FAERS Safety Report 6178407-4 (Version None)
Quarter: 2009Q2

REPORT INFORMATION
  Report Type: 
  Country: None (occurrence: None)
  Receive Date: 20090504
  Receipt Date: 20080320
  Transmission Date: 20091009
  Serious: No
  Sender: FDA-Public Use
  Company Number: US-ALEXION-A200700120

PATIENT

DRUGS (20)
  1. SOLIRIS [Suspect]
     Indication: PAROXYSMAL NOCTURNAL HAEMOGLOBINURIA
     Dosage: 600 MG, SINGLE
     Route: 042
     Dates: start: 20071213, end: 20071213
  2. SOLIRIS [Suspect]
     Dosage: 600 MG, SINGLE
     Route: 042
     Dates: start: 20071220, end: 20071220
  3. SOLIRIS [Suspect]
     Dosage: 600 MG, SINGLE
     Route: 042
     Dates: start: 20071227, end: 20071227
  4. SOLIRIS [Suspect]
     Dosage: 600 MG, SINGLE
     Route: 042
     Dates: start: 20080103, end: 20080103
  5. SOLIRIS [Suspect]
     Dosage: 900 MG, SINGLE
     Route: 042
     Dates: start: 20080110, end: 20080110
  6. SOLIRIS [Suspect]
     Dosage: 900 MG, SINGLE
     Route: 042
     Dates: start: 20080124, end: 20080124
  7. SOLIRIS [Suspect]
     Dosage: 900 MG, SINGLE
     Route: 042
     Dates: start: 20080207, end: 20080207
  8. SOLIRIS [Suspect]
     Dosage: 900 MG, SINGLE
     Route: 042
     Dates: start: 20080221, end: 20080221
  9. SOLIRIS [Suspect]
     Dosage: 900 MG, SINGLE
     Route: 042
     Dates: start: 20080306, end: 20080306
  10. SOLIRIS [Suspect]
     Dosage: 900 MG, SINGLE
     Route: 042
     Dates: start: 20080320, end: 20080320
  11. PREDNISONE [Concomitant]
     Dosage: 20 MG, QD
     Route: 048
  12. COUMADIN [Concomitant]
     Dosage: 6 MG, EVERY OTHER DAY
     Route: 048
  13. COUMADIN [Concomitant]
     Dosage: 8 MG, EVERY OTHER DAY
     Route: 048
  14. FERROUS SULFATE TAB [Concomitant]
     Dosage: 325 MG, QD
     Route: 048
  15. FOLIC ACID [Concomitant]
     Dosage: 1 MG, QD
     Route: 048
  16. OXYCONTIN [Concomitant]
     Indication: BACK PAIN
     Dosage: 60 MG, BID
     Route: 048
  17. SENOKOT /00142201/ [Concomitant]
     Indication: CONSTIPATION
     Dosage: 1 TABLET, BID
     Route: 048
  18. PERCOCET [Concomitant]
     Indication: BACK PAIN
     Dosage: UNK, PRN
     Route: 048
  19. COMPAZINE /00013302/ [Concomitant]
     Indication: PREMEDICATION
     Dosage: 10 MG, QID (Q 6 HRS, AS NECESSARY)
     Dates: start: 20071227, end: 20080124
  20. COMPAZINE /00013302/ [Concomitant]
     Indication: NAUSEA

REACTIONS (6)
  - ACUTE SINUSITIS [None]
  - BLOOD LACTATE DEHYDROGENASE INCREASED [None]
  - HAEMOLYSIS [None]
  - HEADACHE [None]
  - NAUSEA [None]
  - VOMITING [None]
